FAERS Safety Report 23969915 (Version 2)
Quarter: 2024Q3

REPORT INFORMATION
  Report Type: Report from Study
  Country: JP (occurrence: JP)
  Receive Date: 20240613
  Receipt Date: 20240712
  Transmission Date: 20241017
  Serious: No
  Sender: TAKEDA
  Company Number: JP-TAKEDA-2024TJP008575

PATIENT
  Age: 43 Year
  Sex: Female
  Weight: 67.8 kg

DRUGS (3)
  1. LANADELUMAB [Suspect]
     Active Substance: LANADELUMAB
     Indication: Hereditary angioedema with C1 esterase inhibitor deficiency
     Dosage: 300 MILLIGRAM
     Route: 065
     Dates: start: 20230303
  2. FIRAZYR [Concomitant]
     Active Substance: ICATIBANT ACETATE
     Indication: Hereditary angioedema with C1 esterase inhibitor deficiency
     Dosage: 30 MILLIGRAM
     Route: 050
     Dates: start: 20200831
  3. HERBAL NOS [Concomitant]
     Active Substance: HERBALS
     Dosage: 1 DOSAGE FORM
     Route: 048

REACTIONS (3)
  - Diarrhoea [Unknown]
  - Feeling abnormal [Unknown]
  - Abdominal pain [Unknown]

NARRATIVE: CASE EVENT DATE: 20230329
